FAERS Safety Report 19181964 (Version 1)
Quarter: 2021Q2

REPORT INFORMATION
  Report Type: Spontaneous
  Country: US (occurrence: US)
  Receive Date: 20210427
  Receipt Date: 20210427
  Transmission Date: 20210717
  Serious: No
  Sender: FDA-Public Use
  Company Number: US-AMGEN-USASP2021062221

PATIENT

DRUGS (1)
  1. APREMILAST [Suspect]
     Active Substance: APREMILAST
     Indication: LICHEN PLANUS
     Dosage: 30 MILLIGRAM, BID
     Route: 065

REACTIONS (4)
  - Insomnia [Unknown]
  - Off label use [Unknown]
  - Diarrhoea [Unknown]
  - Headache [Unknown]
